FAERS Safety Report 9356697 (Version 2)
Quarter: 2013Q4

REPORT INFORMATION
  Report Type: Spontaneous
  Country: US (occurrence: US)
  Receive Date: 20130619
  Receipt Date: 20131210
  Transmission Date: 20140711
  Serious: Yes (Hospitalization)
  Sender: FDA-Public Use
  Company Number: US-B.I. PHARMACEUTICALS,INC./RIDGEFIELD-2013-BI-17201BP

PATIENT
  Sex: Male
  Weight: 81.65 kg

DRUGS (7)
  1. PRADAXA [Suspect]
     Indication: ANTICOAGULANT THERAPY
     Dates: start: 20120120, end: 20120330
  2. AMIODARONE [Concomitant]
     Dates: start: 2012
  3. SYNTHROID [Concomitant]
     Dates: start: 201210
  4. TENORMIN [Concomitant]
     Dates: start: 2006
  5. COZAAR [Concomitant]
     Dates: start: 2009
  6. HYDROCHLOROTHIAZIDE [Concomitant]
     Dates: start: 2006
  7. VIAGRA [Concomitant]

REACTIONS (4)
  - Gastrointestinal haemorrhage [Unknown]
  - Anaemia [Unknown]
  - Abdominal pain [Unknown]
  - Gastrooesophageal reflux disease [Unknown]
